FAERS Safety Report 12249057 (Version 1)
Quarter: 2016Q2

REPORT INFORMATION
  Report Type: Spontaneous
  Country: US (occurrence: None)
  Receive Date: 20160407
  Receipt Date: 20160407
  Transmission Date: 20160815
  Serious: Yes (Other)
  Sender: FDA-Public Use
  Company Number: None

PATIENT
  Age: 9 Year
  Sex: Female

DRUGS (1)
  1. GLYBURIDE. [Suspect]
     Active Substance: GLYBURIDE

REACTIONS (7)
  - Gastrooesophageal reflux disease [None]
  - Maternal drugs affecting foetus [None]
  - Foetal heart rate deceleration abnormality [None]
  - Premature baby [None]
  - Attention deficit/hyperactivity disorder [None]
  - Strabismus congenital [None]
  - Anxiety [None]

NARRATIVE: CASE EVENT DATE: 20060301
